FAERS Safety Report 7062970-5 (Version None)
Quarter: 2010Q4

REPORT INFORMATION
  Report Type: 
  Country: None (occurrence: None)
  Receive Date: 20101026
  Receipt Date: 20100318
  Transmission Date: 20110411
  Serious: Yes (Other)
  Sender: FDA-Public Use
  Company Number: US-PFIZER INC-2010036551

PATIENT
  Sex: Male

DRUGS (4)
  1. LIPITOR [Suspect]
     Indication: BLOOD CHOLESTEROL
     Dosage: 20 MG, UNK
  2. LISINOPRIL [Concomitant]
     Dosage: 2.5 MG, UNK
  3. ATENOLOL [Concomitant]
     Dosage: 50 MG, UNK
  4. ACETYLSALICYLIC ACID [Concomitant]
     Dosage: UNK

REACTIONS (1)
  - ARTHRALGIA [None]
